FAERS Safety Report 10729675 (Version 1)
Quarter: 2015Q1

REPORT INFORMATION
  Report Type: Spontaneous
  Country: US (occurrence: None)
  Receive Date: 20150121
  Receipt Date: 20150121
  Transmission Date: 20150721
  Serious: Yes (Hospitalization)
  Sender: FDA-Public Use
  Company Number: None

PATIENT
  Age: 50 Year
  Sex: Male
  Weight: 68.04 kg

DRUGS (17)
  1. EMTRICITABINE-TENOFOVIR [Concomitant]
  2. ALLOPURINOL. [Concomitant]
     Active Substance: ALLOPURINOL
  3. ANTIHEMOPHILIC FACOR [Concomitant]
  4. OMEPRAZOLE. [Concomitant]
     Active Substance: OMEPRAZOLE
  5. RALTEGRAVIR POTASSIUM [Concomitant]
     Active Substance: RALTEGRAVIR POTASSIUM
  6. SOVALDI [Suspect]
     Active Substance: SOFOSBUVIR
     Indication: HEPATITIS C
     Dosage: 400 1X DAILY ORAL
     Route: 048
  7. FUROSEMIDE. [Concomitant]
     Active Substance: FUROSEMIDE
  8. LACTULOSE. [Concomitant]
     Active Substance: LACTULOSE
  9. RIBAVIRIN 200 GILEAD SCIENCES, INC. [Suspect]
     Active Substance: RIBAVIRIN
     Indication: HEPATITIS C
     Dosage: 1000 1X DAILY ORAL
     Route: 048
     Dates: start: 20140115, end: 20140702
  10. TRAMADOL [Concomitant]
     Active Substance: TRAMADOL
  11. VITAMIN D [Concomitant]
     Active Substance: CHOLECALCIFEROL
  12. ZINC SULFATE [Concomitant]
     Active Substance: ZINC SULFATE\ZINC SULFATE ANHYDROUS
  13. MULTIVITAMIN-MINERAL [Concomitant]
  14. NITROFURANTOIN (MACROCRYSTALS) [Concomitant]
     Active Substance: NITROFURANTOIN
  15. SPIRONOLACTONE. [Concomitant]
     Active Substance: SPIRONOLACTONE
  16. BUMETANIDE. [Concomitant]
     Active Substance: BUMETANIDE
  17. RIFAXIMIN [Concomitant]
     Active Substance: RIFAXIMIN

REACTIONS (8)
  - Fatigue [None]
  - Procedural complication [None]
  - Atrial fibrillation [None]
  - Encephalopathy [None]
  - Cardiac arrest [None]
  - Liver transplant [None]
  - Acute kidney injury [None]
  - Dialysis [None]

NARRATIVE: CASE EVENT DATE: 20140523
